FAERS Safety Report 8174050-6 (Version None)
Quarter: 2012Q1

REPORT INFORMATION
  Report Type: 
  Country: None (occurrence: None)
  Receive Date: 20120229
  Receipt Date: 20120214
  Transmission Date: 20120608
  Serious: Yes (Death)
  Sender: FDA-Public Use
  Company Number: US-WATSON-2012-02634

PATIENT
  Age: 43 Year
  Sex: Female

DRUGS (1)
  1. FENTANYL-75 [Suspect]
     Indication: PAIN
     Dosage: AS PRESCRIBED
     Route: 062

REACTIONS (1)
  - ANALGESIC DRUG LEVEL INCREASED [None]
